FAERS Safety Report 6572688-0 (Version None)
Quarter: 2010Q1

REPORT INFORMATION
  Report Type: 
  Country: None (occurrence: None)
  Receive Date: 20100205
  Receipt Date: 20100125
  Transmission Date: 20100710
  Serious: Yes (Death)
  Sender: FDA-Public Use
  Company Number: US-JNJFOC-20090706381

PATIENT
  Age: 5 Year
  Sex: Female

DRUGS (4)
  1. ACETAMINOPHEN [Suspect]
     Route: 048
  2. ACETAMINOPHEN [Suspect]
     Indication: PYREXIA
     Dosage: GREATER THAN 8 HOURS
     Route: 048
  3. VALPROIC ACID [Suspect]
     Indication: CONVULSION
     Dosage: GREATER THAN 8 HOURS
     Route: 048
  4. SODIUM BROMIDE [Suspect]
     Indication: DRUG USE FOR UNKNOWN INDICATION
     Route: 065

REACTIONS (5)
  - BRAIN OEDEMA [None]
  - CONVULSION [None]
  - HEPATIC FAILURE [None]
  - INFLUENZA LIKE ILLNESS [None]
  - PYREXIA [None]
